FAERS Safety Report 4332858-9 (Version None)
Quarter: 2004Q1

REPORT INFORMATION
  Report Type: 
  Country: None (occurrence: None)
  Receive Date: 20040330
  Receipt Date: 20040315
  Transmission Date: 20041129
  Serious: Yes (Life-Threatening, Hospitalization)
  Sender: FDA-Public Use
  Company Number: US-JNJFOC-20040101767

PATIENT
  Age: 46 Year
  Sex: Female
  Weight: 53.5244 kg

DRUGS (11)
  1. REMICADE [Suspect]
     Indication: CROHN'S DISEASE
     Dosage: SEE IMAGE
     Route: 042
     Dates: start: 20030612, end: 20030612
  2. REMICADE [Suspect]
     Indication: CROHN'S DISEASE
     Dosage: SEE IMAGE
     Route: 042
     Dates: start: 20030915, end: 20030915
  3. REMICADE [Suspect]
     Indication: CROHN'S DISEASE
     Dosage: SEE IMAGE
     Route: 042
     Dates: start: 20031029, end: 20031029
  4. REMICADE [Suspect]
     Indication: CROHN'S DISEASE
     Dosage: SEE IMAGE
     Route: 042
     Dates: start: 20031210, end: 20031210
  5. TYLENOL # 3 (ACETAMINOPHEN/CODEINE) UNSPECIFIEC [Concomitant]
  6. EFFEXOR [Concomitant]
  7. ACTIVELLA (OESTRANORM) [Concomitant]
  8. CALTRATE (CALCIUM CARBONATE) [Concomitant]
  9. FOLIC ACID [Concomitant]
  10. DOPAMINE HCL [Concomitant]
  11. VANCOMYCIN [Concomitant]

REACTIONS (33)
  - ACUTE RESPIRATORY DISTRESS SYNDROME [None]
  - ANAEMIA [None]
  - ATRIAL FIBRILLATION [None]
  - BLOOD CREATININE INCREASED [None]
  - BLOOD UREA INCREASED [None]
  - COAGULOPATHY [None]
  - COUGH [None]
  - CYANOSIS [None]
  - CYSTITIS KLEBSIELLA [None]
  - DEHYDRATION [None]
  - DIARRHOEA [None]
  - DRUG SCREEN POSITIVE [None]
  - HEPATIC ENZYME INCREASED [None]
  - HYPOTENSION [None]
  - HYPOVENTILATION [None]
  - HYPOXIA [None]
  - INFLUENZA LIKE ILLNESS [None]
  - METABOLIC ACIDOSIS [None]
  - OEDEMA [None]
  - PATHOGEN RESISTANCE [None]
  - PLATELET COUNT DECREASED [None]
  - PNEUMONIA BACTERIAL [None]
  - PNEUMONIA INFLUENZAL [None]
  - PNEUMONIA PNEUMOCOCCAL [None]
  - PNEUMONIA VIRAL [None]
  - PNEUMOTHORAX [None]
  - RALES [None]
  - RESPIRATORY ACIDOSIS [None]
  - SEPSIS [None]
  - SKIN DISCOLOURATION [None]
  - STAPHYLOCOCCAL BACTERAEMIA [None]
  - TACHYCARDIA [None]
  - URINARY TRACT INFECTION [None]
